FAERS Safety Report 9631743 (Version 3)
Quarter: 2013Q4

REPORT INFORMATION
  Report Type: Spontaneous
  Country: FR (occurrence: FR)
  Receive Date: 20131018
  Receipt Date: 20131118
  Transmission Date: 20140711
  Serious: Yes (Other)
  Sender: FDA-Public Use
  Company Number: FR-JNJFOC-20131005715

PATIENT
  Age: 64 Year
  Sex: Female
  Weight: 72 kg

DRUGS (4)
  1. XEPLION [Suspect]
     Indication: SCHIZOPHRENIA
     Route: 030
     Dates: start: 20130919
  2. LOXAPAC [Concomitant]
     Indication: AGITATION
     Route: 030
     Dates: start: 20130903, end: 20130920
  3. VALIUM [Concomitant]
     Indication: AGITATION
     Route: 048
     Dates: start: 20130903
  4. VALIUM [Concomitant]
     Indication: ANXIETY
     Route: 048
     Dates: start: 20130903

REACTIONS (4)
  - Respiratory failure [Recovered/Resolved]
  - Chronic obstructive pulmonary disease [Recovered/Resolved]
  - Pain [Unknown]
  - Viral upper respiratory tract infection [Unknown]
